FAERS Safety Report 4958357-9 (Version None)
Quarter: 2006Q1

REPORT INFORMATION
  Report Type: 
  Country: None (occurrence: None)
  Receive Date: 20060330
  Receipt Date: 20060205
  Transmission Date: 20060701
  Serious: Yes (Hospitalization, Other)
  Sender: FDA-Public Use
  Company Number: US-AVENTIS-200611330US

PATIENT
  Sex: Female
  Weight: 67.72 kg

DRUGS (5)
  1. LANTUS [Suspect]
     Indication: DIABETES MELLITUS
     Dosage: DOSE: UNKNOWN
  2. HUMALOG [Concomitant]
     Dosage: DOSE UNIT: UNITS
  3. HYDROCHLOROTHIAZIDE [Concomitant]
     Dosage: DOSE: UNKNOWN
  4. ACTIVELLA [Concomitant]
     Dosage: DOSE: UNKNOWN
  5. TRAMADOL HCL [Concomitant]
     Dosage: DOSE: UNKNOWN

REACTIONS (6)
  - BLOOD GLUCOSE DECREASED [None]
  - DEHYDRATION [None]
  - GASTRIC DISORDER [None]
  - GASTROINTESTINAL DISORDER [None]
  - HYPOGLYCAEMIA [None]
  - VOMITING [None]
